FAERS Safety Report 8135274-7 (Version None)
Quarter: 2012Q1

REPORT INFORMATION
  Report Type: 
  Country: None (occurrence: None)
  Receive Date: 20120214
  Receipt Date: 20120209
  Transmission Date: 20120608
  Serious: Yes (Other)
  Sender: FDA-Public Use
  Company Number: US-PFIZER INC-2011218602

PATIENT
  Sex: Male

DRUGS (2)
  1. ADDERALL XR 10 [Concomitant]
     Indication: ATTENTION DEFICIT/HYPERACTIVITY DISORDER
     Dosage: UNK
  2. CHANTIX [Suspect]
     Indication: SMOKING CESSATION THERAPY
     Dosage: 0.5 MG FIRST 3 DAYS; 1 MG THEREAFTER
     Dates: start: 20080815

REACTIONS (4)
  - AMNESIA [None]
  - CONVULSION [None]
  - DEPRESSION [None]
  - FATIGUE [None]
